FAERS Safety Report 4636283-2 (Version None)
Quarter: 2005Q2

REPORT INFORMATION
  Report Type: 
  Country: None (occurrence: None)
  Receive Date: 20050415
  Receipt Date: 20040518
  Transmission Date: 20051028
  Serious: No
  Sender: FDA-Public Use
  Company Number: US-BRISTOL-MYERS SQUIBB COMPANY-12606133

PATIENT
  Age: 63 Year
  Sex: Male

DRUGS (7)
  1. PARAPLATIN [Suspect]
     Indication: NON-SMALL CELL LUNG CANCER
     Dosage: 2 DOSES @ 195 MG/WK 5 DOSES @ 146 MG/WK
     Route: 042
     Dates: start: 20031030, end: 20040108
  2. TAXOL [Concomitant]
  3. KYTRIL [Concomitant]
  4. ZANTAC [Concomitant]
  5. DECADRON [Concomitant]
  6. BENADRYL [Concomitant]
  7. PROCRIT [Concomitant]

REACTIONS (4)
  - CHOKING SENSATION [None]
  - FLUSHING [None]
  - HEART RATE INCREASED [None]
  - OXYGEN SATURATION DECREASED [None]
